FAERS Safety Report 8514497-9 (Version None)
Quarter: 2012Q3

REPORT INFORMATION
  Report Type: 
  Country: None (occurrence: None)
  Receive Date: 20120717
  Receipt Date: 20120711
  Transmission Date: 20120928
  Serious: Yes (Hospitalization, Other)
  Sender: FDA-Public Use
  Company Number: FR-PFIZER INC-2012166447

PATIENT
  Age: 65 Year
  Sex: Female

DRUGS (8)
  1. PANTOPRAZOLE SODIUM [Suspect]
     Dosage: UNK
  2. LYRICA [Suspect]
     Dosage: UNK
  3. ATARAX [Suspect]
     Dosage: 1 DF, SINGLE
     Dates: start: 20120626, end: 20120626
  4. ACUPAN [Suspect]
     Dosage: UNK
  5. LOPRESSOR [Suspect]
     Dosage: UNK
  6. ACETAMINOPHEN [Suspect]
     Dosage: UNK
  7. DACARBAZINE [Suspect]
     Indication: METASTATIC MALIGNANT MELANOMA
     Dosage: UNK
     Dates: start: 20120522, end: 20120522
  8. PLAVIX [Suspect]
     Dosage: UNK

REACTIONS (1)
  - PANCREATITIS ACUTE [None]
